FAERS Safety Report 11058704 (Version 1)
Quarter: 2015Q2

REPORT INFORMATION
  Report Type: Spontaneous
  Country: US (occurrence: None)
  Receive Date: 20150422
  Receipt Date: 20150422
  Transmission Date: 20150821
  Serious: Yes (Disabling, Other)
  Sender: FDA-Public Use
  Company Number: None

PATIENT
  Age: 59 Year
  Sex: Male
  Weight: 58.51 kg

DRUGS (7)
  1. METHOTREXATE [Concomitant]
     Active Substance: METHOTREXATE
  2. CALCIPOTRIENE CREAM [Concomitant]
  3. ALLEVE 12 HR [Concomitant]
  4. MULTIVITAMINS [Concomitant]
     Active Substance: VITAMINS
  5. HUMIRA [Suspect]
     Active Substance: ADALIMUMAB
     Indication: RHEUMATOID ARTHRITIS
     Dosage: 1 INJECTION EVERY 2 WEEKS INTO THE MUSCLE
     Route: 030
  6. LEVOTHYROXINE [Concomitant]
     Active Substance: LEVOTHYROXINE
  7. FOLIC ACID. [Concomitant]
     Active Substance: FOLIC ACID

REACTIONS (9)
  - Alopecia [None]
  - Melanocytic naevus [None]
  - Skin exfoliation [None]
  - Paraesthesia [None]
  - Fatigue [None]
  - Thrombosis [None]
  - Skin ulcer [None]
  - Scab [None]
  - Hypoaesthesia [None]
